FAERS Safety Report 8231665-4 (Version None)
Quarter: 2012Q1

REPORT INFORMATION
  Report Type: 
  Country: None (occurrence: None)
  Receive Date: 20120323
  Receipt Date: 20120312
  Transmission Date: 20120608
  Serious: Yes (Hospitalization)
  Sender: FDA-Public Use
  Company Number: CH-PFIZER INC-2012056264

PATIENT
  Age: 39 Year
  Sex: Male

DRUGS (4)
  1. CRESTOR [Concomitant]
     Indication: HYPERTRIGLYCERIDAEMIA
  2. TEMSIROLIMUS [Suspect]
     Indication: NON-HODGKIN'S LYMPHOMA
     Dosage: 1.5 MG, FREQUENCY NOT REPORTED
     Route: 042
     Dates: start: 20120120, end: 20120224
  3. CRESTOR [Concomitant]
     Indication: HYPERCHOLESTEROLAEMIA
     Dosage: 5 MG, UNK
     Dates: start: 20120210, end: 20120229
  4. INOTUZUMAB OZOGAMICIN [Suspect]
     Indication: NON-HODGKIN'S LYMPHOMA
     Dosage: 1.6 MG, FREQUENCY  NOT REPORTED
     Route: 042
     Dates: start: 20120120, end: 20120217

REACTIONS (6)
  - ABDOMINAL PAIN [None]
  - CAPILLARY LEAK SYNDROME [None]
  - BLOOD CREATININE INCREASED [None]
  - ALANINE AMINOTRANSFERASE INCREASED [None]
  - ASPARTATE AMINOTRANSFERASE INCREASED [None]
  - ASCITES [None]
